FAERS Safety Report 12563107 (Version 2)
Quarter: 2016Q3

REPORT INFORMATION
  Report Type: Spontaneous
  Country: DE (occurrence: DE)
  Receive Date: 20160715
  Receipt Date: 20160725
  Transmission Date: 20161109
  Serious: Yes (Death)
  Sender: FDA-Public Use
  Company Number: DE-MYLANLABS-2016M1028751

PATIENT

DRUGS (4)
  1. LOPERAMID [Suspect]
     Active Substance: LOPERAMIDE
     Indication: GASTROENTERITIS
     Dosage: 1-3
     Route: 048
     Dates: start: 20160622, end: 20160623
  2. LEMON. [Interacting]
     Active Substance: LEMON
     Dosage: UNK
     Dates: start: 20160621
  3. LOPERAMIDE [Suspect]
     Active Substance: LOPERAMIDE
     Indication: GASTROENTERITIS
     Dosage: UNK
     Route: 048
     Dates: start: 20160622, end: 20160623
  4. CHININ [Interacting]
     Active Substance: QUININE HYDROCHLORIDE
     Route: 048
     Dates: start: 20160622, end: 20160622

REACTIONS (7)
  - Brain injury [Fatal]
  - Food interaction [Fatal]
  - Drug effect increased [Fatal]
  - Aspiration [Fatal]
  - Resuscitation [Fatal]
  - Sedation [Fatal]
  - Disturbance in attention [Fatal]

NARRATIVE: CASE EVENT DATE: 20160623
